FAERS Safety Report 11324159 (Version 1)
Quarter: 2015Q3

REPORT INFORMATION
  Report Type: Spontaneous
  Country: IN (occurrence: IN)
  Receive Date: 20150730
  Receipt Date: 20150730
  Transmission Date: 20151125
  Serious: Yes (Other)
  Sender: FDA-Public Use
  Company Number: IN-PFIZER INC-2015248026

PATIENT
  Age: 64 Year
  Sex: Male

DRUGS (2)
  1. LATANOPROST. [Suspect]
     Active Substance: LATANOPROST
     Indication: OPEN ANGLE GLAUCOMA
     Dosage: 0.003% EYE DROPS ONCE AT BEDTIME
     Route: 047
  2. LEVOBUNOLOL [Concomitant]
     Active Substance: LEVOBUNOLOL
     Indication: OPEN ANGLE GLAUCOMA
     Dosage: 0.5% EYE DROPS TWO TIMES PER DAY

REACTIONS (1)
  - Choroidal detachment [Recovered/Resolved]
